FAERS Safety Report 19421373 (Version 2)
Quarter: 2024Q3

REPORT INFORMATION
  Report Type: Spontaneous
  Country: PL (occurrence: PL)
  Receive Date: 20210616
  Receipt Date: 20240805
  Transmission Date: 20241017
  Serious: Yes (Hospitalization)
  Sender: JOHNSON AND JOHNSON
  Company Number: None

PATIENT
  Sex: Female

DRUGS (3)
  1. PALIPERIDONE PALMITATE [Suspect]
     Active Substance: PALIPERIDONE PALMITATE
     Indication: Product used for unknown indication
     Dosage: 2 INJECTIONS ON APRIL 10, 2020 AND APRIL 15, 2020, THE PATIENT DOES NOT KNOW WHETHER THE TREATMENT W
     Route: 030
     Dates: start: 20200410
  2. PALIPERIDONE PALMITATE [Suspect]
     Active Substance: PALIPERIDONE PALMITATE
     Route: 030
     Dates: start: 20200415
  3. PALIPERIDONE PALMITATE [Suspect]
     Active Substance: PALIPERIDONE PALMITATE

REACTIONS (30)
  - Cerebrovascular accident [Recovering/Resolving]
  - Musculoskeletal stiffness [Recovering/Resolving]
  - Urinary incontinence [Recovering/Resolving]
  - Breast discomfort [Recovering/Resolving]
  - Leukopenia [Recovering/Resolving]
  - Body temperature increased [Recovering/Resolving]
  - Nasal congestion [Recovering/Resolving]
  - Somnolence [Recovering/Resolving]
  - Headache [Recovering/Resolving]
  - Libido decreased [Recovering/Resolving]
  - Dizziness [Recovering/Resolving]
  - Pain in extremity [Recovering/Resolving]
  - Arthralgia [Recovering/Resolving]
  - Musculoskeletal pain [Recovering/Resolving]
  - Hyperprolactinaemia [Recovering/Resolving]
  - Somnolence [Recovering/Resolving]
  - Cough [Recovering/Resolving]
  - Dystonia [Recovering/Resolving]
  - Initial insomnia [Recovering/Resolving]
  - Tinnitus [Recovering/Resolving]
  - Depressed level of consciousness [Recovering/Resolving]
  - Ear pain [Recovering/Resolving]
  - Photophobia [Recovering/Resolving]
  - Neck pain [Recovering/Resolving]
  - Urine output decreased [Recovering/Resolving]
  - Influenza like illness [Recovering/Resolving]
  - Nipple oedema [Recovering/Resolving]
  - Hypopnoea [Recovering/Resolving]
  - Oliguria [Recovering/Resolving]
  - Photosensitivity reaction [Recovering/Resolving]

NARRATIVE: CASE EVENT DATE: 20200410
